FAERS Safety Report 9201489 (Version 2)
Quarter: 2013Q2

REPORT INFORMATION
  Report Type: Spontaneous
  Country: AR (occurrence: AR)
  Receive Date: 20130401
  Receipt Date: 20130607
  Transmission Date: 20140414
  Serious: Yes (Hospitalization)
  Sender: FDA-Public Use
  Company Number: AR-GENZYME-CERZ-1002877

PATIENT
  Sex: Female

DRUGS (1)
  1. CEREZYME [Suspect]
     Indication: GAUCHER^S DISEASE
     Dosage: UNK
     Route: 042
     Dates: start: 2009

REACTIONS (4)
  - Hypertension [Unknown]
  - Urinary tract infection [Unknown]
  - Anaemia [Unknown]
  - Maternal exposure timing unspecified [Unknown]
